FAERS Safety Report 17576514 (Version 1)
Quarter: 2020Q1

REPORT INFORMATION
  Report Type: Spontaneous
  Country: US (occurrence: US)
  Receive Date: 20200324
  Receipt Date: 20200324
  Transmission Date: 20200409
  Serious: Yes (Other)
  Sender: FDA-Public Use
  Company Number: US-ROCHE-2565446

PATIENT
  Sex: Female

DRUGS (2)
  1. COTELLIC [Suspect]
     Active Substance: COBIMETINIB
     Indication: METASTASIS
     Dosage: ON DAY 1-21 OF 28 DAY CYCLE ONGOING
     Route: 048
  2. ZELBORAF [Suspect]
     Active Substance: VEMURAFENIB
     Indication: METASTASIS
     Route: 048

REACTIONS (4)
  - Fatigue [Not Recovered/Not Resolved]
  - Menstruation irregular [Unknown]
  - Headache [Not Recovered/Not Resolved]
  - Asthenia [Unknown]
